FAERS Safety Report 11037941 (Version 1)
Quarter: 2015Q2

REPORT INFORMATION
  Report Type: Spontaneous
  Country: US (occurrence: US)
  Receive Date: 20150416
  Receipt Date: 20150416
  Transmission Date: 20150821
  Serious: No
  Sender: FDA-Public Use
  Company Number: US-PFIZER INC-2015125763

PATIENT
  Age: 74 Year
  Sex: Female
  Weight: 70 kg

DRUGS (1)
  1. IBUPROFEN. [Suspect]
     Active Substance: IBUPROFEN
     Dosage: 200 MG, AS NEEDED (ONE EVERY 4 HOURS)
     Dates: start: 20150309

REACTIONS (2)
  - Constipation [Recovered/Resolved]
  - Expired product administered [Unknown]
